FAERS Safety Report 19584220 (Version 7)
Quarter: 2023Q1

REPORT INFORMATION
  Report Type: Report from Study
  Country: US (occurrence: US)
  Receive Date: 20210720
  Receipt Date: 20230317
  Transmission Date: 20230418
  Serious: Yes (Hospitalization)
  Sender: FDA-Public Use
  Company Number: US-PFIZER INC-2021867274

PATIENT
  Age: 67 Year
  Sex: Female
  Weight: 43.4 kg

DRUGS (20)
  1. ENCORAFENIB [Suspect]
     Active Substance: ENCORAFENIB
     Indication: Non-small cell lung cancer
     Dosage: 450 MG, ONCE DAILY CONTINUOUS
     Route: 048
     Dates: start: 20200828
  2. BINIMETINIB [Suspect]
     Active Substance: BINIMETINIB
     Indication: Non-small cell lung cancer
     Dosage: 45 MG, TWICE DAILY CONTINUOUS
     Route: 048
     Dates: start: 20200828
  3. ASPIRIN [Concomitant]
     Active Substance: ASPIRIN
     Indication: Prophylaxis
     Dosage: 81 MG, 1X/DAY (QD)
     Route: 048
     Dates: start: 1985
  4. FLUTICASONE PROPIONATE [Concomitant]
     Active Substance: FLUTICASONE PROPIONATE
     Indication: Seasonal allergy
     Dosage: 2 SPRAYS IN THE NOSTRIL, DAILY AS NEEDED (PRN)
     Route: 045
     Dates: start: 20100101
  5. PANTOPRAZOLE [Concomitant]
     Active Substance: PANTOPRAZOLE
     Indication: Gastrooesophageal reflux disease
     Dosage: 40 MG, 1X/DAY (QD)
     Route: 048
     Dates: start: 20180101
  6. CLARITIN-D NOS [Concomitant]
     Active Substance: LORATADINE\PSEUDOEPHEDRINE SULFATE
     Indication: Seasonal allergy
     Dosage: [LORATADINE 10 MG]/[PSEUDOEPHEDRINE SULFATE 240 MG], ONCE DAILY, AS NEEDED (PRN) (24HOUR)
     Route: 048
     Dates: start: 20100101
  7. ROPINIROLE [Concomitant]
     Active Substance: ROPINIROLE
     Indication: Restless legs syndrome
     Dosage: 1 MG, 1X/DAY (QD) AT BEDTIME
     Route: 048
     Dates: start: 20180101
  8. ATORVASTATIN [Concomitant]
     Active Substance: ATORVASTATIN
     Indication: Hyperlipidaemia
     Dosage: 20 MG, 1X/DAY (QD)
     Route: 048
     Dates: start: 19850101
  9. ALENDRONATE [Concomitant]
     Active Substance: ALENDRONATE SODIUM
     Indication: Osteoporosis
     Dosage: 70 MG, 1 TIME PER WEEK (QS)
     Route: 048
     Dates: start: 20190101
  10. DULOXETINE [Concomitant]
     Active Substance: DULOXETINE
     Indication: Fibromyalgia
     Dosage: 90 MG, 1X/DAY (QD)
     Route: 048
     Dates: start: 19890101
  11. FENOFIBRATE [Concomitant]
     Active Substance: FENOFIBRATE
     Indication: Hyperlipidaemia
     Dosage: 145 MG, 1X/DAY (QD) (NANOCRYSTALLIZED)
     Route: 048
     Dates: start: 20160705
  12. SYMBICORT [Concomitant]
     Active Substance: BUDESONIDE\FORMOTEROL FUMARATE DIHYDRATE
     Indication: Chronic obstructive pulmonary disease
     Dosage: [BUDESONIDE 160 UG]/[FORMOTEROL FUMARATE 4.5 UG], 2 PUFFS BY MOUTH, 2X/DAY (BID)
     Route: 055
     Dates: start: 2016
  13. ZOFRAN [Concomitant]
     Active Substance: ONDANSETRON HYDROCHLORIDE
     Indication: Nausea
     Dosage: 8 MG, AS NEEDED (PRN), EVERY 8 HOURS
     Route: 048
     Dates: start: 20200831
  14. ACETAMINOPHEN\HYDROCODONE [Concomitant]
     Active Substance: ACETAMINOPHEN\HYDROCODONE
     Indication: Pain
     Dosage: [HYDROCODONE BITARTRATE 10 MG][PARACETAMOL 325 MG] AS NEEDED (PRN), EVERY 8 HOURS
     Route: 048
     Dates: start: 20200916, end: 20211215
  15. FENTANYL [Concomitant]
     Active Substance: FENTANYL
     Indication: Pain
     Dosage: 37.5 MCG, Q72 HOURS
     Route: 062
     Dates: start: 20200911
  16. COMPAZINE [Concomitant]
     Active Substance: PROCHLORPERAZINE MALEATE
     Indication: Nausea
     Dosage: 10 MG, AS NEEDED (PRN), EVERY 6 HOURS
     Route: 048
     Dates: start: 20200901
  17. ZITHROMAX [Concomitant]
     Active Substance: AZITHROMYCIN DIHYDRATE
     Indication: Upper respiratory tract infection
     Dosage: 250 MG, AS NEEDED (PRN)
     Route: 048
     Dates: start: 20210119
  18. CHANTIX [Concomitant]
     Active Substance: VARENICLINE TARTRATE
     Indication: Smoking cessation therapy
     Dosage: 0.5 MG, 1X/DAY (QD), DAY 1-3: 0.5MG 2X/DAY, DAY 4-7 FOLLOWED BY 1 MG, 2X/DAY
     Route: 048
     Dates: start: 20201120
  19. FLEXERIL [Concomitant]
     Active Substance: CYCLOBENZAPRINE HYDROCHLORIDE
     Indication: Muscle spasms
     Dosage: 5 MG, AS NEEDED (PRN)
     Route: 048
     Dates: start: 20210111
  20. BUSPIRONE [Concomitant]
     Active Substance: BUSPIRONE HYDROCHLORIDE
     Indication: Anxiety disorder
     Dosage: 15 MG, 2X/DAY (BID)
     Route: 048
     Dates: start: 20180601

REACTIONS (1)
  - Hypertension [Recovered/Resolved]

NARRATIVE: CASE EVENT DATE: 20210705
